FAERS Safety Report 7325318-4 (Version None)
Quarter: 2011Q1

REPORT INFORMATION
  Report Type: 
  Country: None (occurrence: None)
  Receive Date: 20110302
  Receipt Date: 20101216
  Transmission Date: 20110831
  Serious: Yes (Hospitalization, Other)
  Sender: FDA-Public Use
  Company Number: US-BAYER-201016997NA

PATIENT
  Sex: Female
  Weight: 61.224 kg

DRUGS (7)
  1. DICLOFENAC SODIUM [Concomitant]
  2. SYNTHROID [Concomitant]
     Dosage: UNK
     Dates: start: 19800101
  3. CLIDINIUM [Concomitant]
  4. FUROSEMID [Concomitant]
  5. YAZ [Suspect]
     Indication: MENOPAUSAL SYMPTOMS
     Dosage: UNK
     Route: 048
     Dates: start: 20060601, end: 20060915
  6. LEVOTHYROXINE SODIUM [Concomitant]
  7. MICRO-K [Concomitant]

REACTIONS (3)
  - PULMONARY INFARCTION [None]
  - DEEP VEIN THROMBOSIS [None]
  - PULMONARY EMBOLISM [None]
